FAERS Safety Report 15228450 (Version 2)
Quarter: 2018Q3

REPORT INFORMATION
  Report Type: Report from Study
  Country: None (occurrence: KR)
  Receive Date: 20180801
  Receipt Date: 20180806
  Transmission Date: 20181010
  Serious: Yes (Hospitalization)
  Sender: FDA-Public Use
  Company Number: KR-ABBVIE-18P-090-2431312-00

PATIENT
  Age: 60 Year
  Sex: Female
  Weight: 51.5 kg

DRUGS (17)
  1. SINEMENT CR [Concomitant]
     Route: 048
     Dates: start: 20140508, end: 201709
  2. SINEMENT CR [Concomitant]
     Dosage: 4X
     Route: 048
     Dates: start: 20080117, end: 201006
  3. DUODOPA [Suspect]
     Active Substance: CARBIDOPA\LEVODOPA
     Dosage: TITRATION VISIT 4  MD: 10 ; CD: 2  ML/HR; ED: 1ML 2 HOUR
     Route: 050
     Dates: start: 20180423, end: 20180424
  4. DUODOPA [Suspect]
     Active Substance: CARBIDOPA\LEVODOPA
     Dosage: MD: 12ML; CD: 3.0 ML/HR; ED: 1 ML 2 HR
     Route: 050
     Dates: start: 20180509, end: 20180514
  5. DUODOPA [Suspect]
     Active Substance: CARBIDOPA\LEVODOPA
     Dosage: MD: 12 ML; CD: 3.1 ML/HR; ED: 1 ML 2 HOUR
     Route: 050
     Dates: start: 20180514, end: 20180705
  6. SINEMENT CR [Concomitant]
     Dosage: ONLY PRIOR TO BEDTIME USE
     Route: 048
     Dates: start: 20140508
  7. DUODOPA [Suspect]
     Active Substance: CARBIDOPA\LEVODOPA
     Dosage: TITRATION VISIT 6  MD: 10;  CD: 1.8  ML/HR;  ED: 1 ML 1 HOUR
     Route: 050
     Dates: start: 20180425, end: 20180502
  8. SINEMENT CR [Concomitant]
     Route: 048
     Dates: start: 20140508, end: 201709
  9. ZANIDIP [Concomitant]
     Active Substance: LERCANIDIPINE HYDROCHLORIDE
     Indication: HYPERTENSION
     Route: 048
     Dates: start: 20090119
  10. DUODOPA [Suspect]
     Active Substance: CARBIDOPA\LEVODOPA
     Dosage: TITRATION VISIT 3  MD: 12 ; CD: 2  ML/HR; ED: 1 ML 2 HOUR
     Route: 050
     Dates: start: 20180422, end: 20180423
  11. DUODOPA [Suspect]
     Active Substance: CARBIDOPA\LEVODOPA
     Dosage: TITRATION VISIT 5  MD: 10 ; CD: 2  ML/HR; ED: 1 ML 2 HOUR
     Route: 050
     Dates: start: 20180424, end: 20180425
  12. DUODOPA [Suspect]
     Active Substance: CARBIDOPA\LEVODOPA
     Dosage: MD: 12; CD:2.3 ML/HR; ED: 1 ML 2 HOUR
     Route: 050
     Dates: start: 20180502, end: 20180503
  13. SINEMENT CR [Concomitant]
     Indication: PARKINSON^S DISEASE
     Dosage: 3X
     Route: 048
     Dates: start: 20080103, end: 201010
  14. DUODOPA [Suspect]
     Active Substance: CARBIDOPA\LEVODOPA
     Indication: PARKINSON^S DISEASE
     Dosage: TITRATION VISIT 1 MD: 13.6; CD: 2.3 ML/HR; ED: 1ML 2 HOUR
     Route: 050
     Dates: start: 20180420, end: 20180421
  15. DUODOPA [Suspect]
     Active Substance: CARBIDOPA\LEVODOPA
     Dosage: TITRATION VISIT 2  MD: 12 ; CD: 2  ML/HR; ED: 1 ML 2HOUR
     Route: 050
     Dates: start: 20180421, end: 20180422
  16. DUODOPA [Suspect]
     Active Substance: CARBIDOPA\LEVODOPA
     Dosage: MD:12 ML; CD: 3.1 ML/HR; ED: 1 ML 2 HOUR
     Route: 050
     Dates: start: 20180503, end: 20180509
  17. DUODOPA [Suspect]
     Active Substance: CARBIDOPA\LEVODOPA
     Dosage: MD 12ML; CD: 3.1 ML/HOUR; ED: 1 ML 2 HOUR
     Route: 050
     Dates: start: 20180705

REACTIONS (1)
  - Stoma site infection [Recovered/Resolved]

NARRATIVE: CASE EVENT DATE: 20180723
